FAERS Safety Report 9822513 (Version 1)
Quarter: 2014Q1

REPORT INFORMATION
  Report Type: Spontaneous
  Country: US (occurrence: US)
  Receive Date: 20140116
  Receipt Date: 20140116
  Transmission Date: 20141002
  Serious: No
  Sender: FDA-Public Use
  Company Number: US-ORAPHARMA INC.-QUINORA-2012-035

PATIENT
  Sex: 0

DRUGS (1)
  1. ARESTIN [Suspect]
     Indication: PRODUCT USED FOR UNKNOWN INDICATION
     Dosage: UNK, ONE TIME DOSE
     Route: 048
     Dates: start: 20110519, end: 20110519

REACTIONS (9)
  - Vision blurred [Unknown]
  - Food allergy [Unknown]
  - Chest pain [Unknown]
  - Aortic dilatation [Unknown]
  - Insomnia [Unknown]
  - Gingival pain [Unknown]
  - Pericarditis [Unknown]
  - Tendon rupture [Unknown]
  - Gingival swelling [Unknown]
